FAERS Safety Report 19381320 (Version 1)
Quarter: 2021Q2

REPORT INFORMATION
  Report Type: Spontaneous
  Country: IT (occurrence: IT)
  Receive Date: 20210607
  Receipt Date: 20210607
  Transmission Date: 20210717
  Serious: Yes (Hospitalization)
  Sender: FDA-Public Use
  Company Number: IT-ACCORD-227180

PATIENT
  Age: 59 Year
  Sex: Female

DRUGS (8)
  1. EMTRICITABINE/TENOFOVIR [Suspect]
     Active Substance: EMTRICITABINE\TENOFOVIR
     Indication: HIV INFECTION
     Dates: start: 20180413
  2. DARUNAVIR/COBICISTAT [Interacting]
     Active Substance: COBICISTAT\DARUNAVIR ETHANOLATE
     Indication: HIV INFECTION
     Dosage: UNK
     Dates: end: 201804
  3. CLOPIDOGREL [Suspect]
     Active Substance: CLOPIDOGREL BISULFATE
     Indication: TRANSIENT ISCHAEMIC ATTACK
  4. RIFAMPICIN [Suspect]
     Active Substance: RIFAMPIN
     Indication: ANTIBIOTIC THERAPY
     Dosage: UNK
  5. DOLUTEGRAVIR [Suspect]
     Active Substance: DOLUTEGRAVIR
     Indication: HIV INFECTION
     Dosage: 50 MG, QD
     Dates: start: 20180413, end: 201804
  6. ROSUVASTATIN. [Interacting]
     Active Substance: ROSUVASTATIN
     Indication: TRANSIENT ISCHAEMIC ATTACK
  7. MARAVIROC [Interacting]
     Active Substance: MARAVIROC
     Indication: PRODUCT USED FOR UNKNOWN INDICATION
     Dosage: 150 MG, BID
  8. MARAVIROC [Interacting]
     Active Substance: MARAVIROC
     Indication: HIV INFECTION
     Dosage: 150 MG, BID
     Dates: end: 201804

REACTIONS (7)
  - Anxiety [Recovered/Resolved]
  - Condition aggravated [Recovered/Resolved]
  - Drug interaction [Unknown]
  - Psychiatric symptom [Recovered/Resolved]
  - Mental disorder [Recovered/Resolved]
  - Irritability [Recovered/Resolved]
  - Depression [Recovered/Resolved]

NARRATIVE: CASE EVENT DATE: 20180416
